FAERS Safety Report 11778718 (Version 2)
Quarter: 2015Q4

REPORT INFORMATION
  Report Type: Report from Study
  Country: US (occurrence: US)
  Receive Date: 20151125
  Receipt Date: 20151203
  Transmission Date: 20160304
  Serious: Yes (Other)
  Sender: FDA-Public Use
  Company Number: US-ABBVIE-15K-163-1471041-00

PATIENT
  Age: 55 Year
  Sex: Female
  Weight: 106.24 kg

DRUGS (2)
  1. HUMIRA [Suspect]
     Active Substance: ADALIMUMAB
     Indication: CROHN^S DISEASE
     Route: 058
     Dates: start: 20150406
  2. DICYCLOMINE [Concomitant]
     Active Substance: DICYCLOMINE HYDROCHLORIDE
     Indication: PRODUCT USED FOR UNKNOWN INDICATION

REACTIONS (7)
  - Clostridium difficile infection [Recovered/Resolved]
  - Diarrhoea [Unknown]
  - Systemic lupus erythematosus [Unknown]
  - Diverticulitis [Recovering/Resolving]
  - Abdominal pain [Unknown]
  - Haematochezia [Unknown]
  - Gastrointestinal bacterial infection [Recovering/Resolving]

NARRATIVE: CASE EVENT DATE: 2015
